FAERS Safety Report 4750149-9 (Version None)
Quarter: 2005Q3

REPORT INFORMATION
  Report Type: 
  Country: None (occurrence: None)
  Receive Date: 20050819
  Receipt Date: 20050803
  Transmission Date: 20060218
  Serious: Yes (Other)
  Sender: FDA-Public Use
  Company Number: DSA_26827_2005

PATIENT
  Sex: Female

DRUGS (3)
  1. CARDIZEM CD [Suspect]
     Indication: BLOOD PRESSURE
     Dosage: DF QD PO
     Route: 048
     Dates: start: 20050513
  2. PROTONIX [Concomitant]
  3. DIOVAN [Concomitant]

REACTIONS (2)
  - ADVERSE DRUG REACTION [None]
  - COELIAC DISEASE [None]
